FAERS Safety Report 15471412 (Version 1)
Quarter: 2018Q4

REPORT INFORMATION
  Report Type: Spontaneous
  Country: GB (occurrence: GB)
  Receive Date: 20181007
  Receipt Date: 20181007
  Transmission Date: 20190205
  Serious: Yes (Hospitalization)
  Sender: FDA-Public Use
  Company Number: GB-DEXPHARM-20180740

PATIENT
  Age: 68 Year
  Sex: Female

DRUGS (4)
  1. TRAMADOL HYDROICHLORIDE [Concomitant]
  2. OMEPRAZOLE SODIUM [Concomitant]
     Active Substance: OMEPRAZOLE SODIUM
  3. PARACETAMOL DC [Concomitant]
  4. DICLOFENAC [Suspect]
     Active Substance: DICLOFENAC
     Indication: INFLAMMATION
     Route: 048
     Dates: end: 20180723

REACTIONS (1)
  - Acute coronary syndrome [Recovering/Resolving]
